FAERS Safety Report 25502171 (Version 1)
Quarter: 2025Q3

REPORT INFORMATION
  Report Type: Spontaneous
  Country: CA (occurrence: CA)
  Receive Date: 20250702
  Receipt Date: 20250702
  Transmission Date: 20251020
  Serious: Yes (Death, Life-Threatening, Hospitalization, Disabling, Congenital Anomaly, Other)
  Sender: Haleon PLC
  Company Number: CA-HALEON-2249069

PATIENT
  Age: 40 Year
  Sex: Female
  Weight: 96 kg

DRUGS (278)
  1. DICLOFENAC [Suspect]
     Active Substance: DICLOFENAC
     Indication: Product used for unknown indication
  2. DICLOFENAC SODIUM [Suspect]
     Active Substance: DICLOFENAC SODIUM
     Indication: Product used for unknown indication
  3. TUMS [Suspect]
     Active Substance: CALCIUM CARBONATE
     Indication: Product used for unknown indication
  4. ACETAMINOPHEN [Suspect]
     Active Substance: ACETAMINOPHEN
     Indication: Product used for unknown indication
  5. ACETAMINOPHEN AND CODEINE [Suspect]
     Active Substance: ACETAMINOPHEN\CODEINE PHOSPHATE
     Indication: Product used for unknown indication
  6. ACTEMRA [Suspect]
     Active Substance: TOCILIZUMAB
     Indication: Product used for unknown indication
  7. ATOMOXETINE HYDROCHLORIDE [Suspect]
     Active Substance: ATOMOXETINE HYDROCHLORIDE
     Indication: Product used for unknown indication
  8. ATOMOXETINE HYDROCHLORIDE [Suspect]
     Active Substance: ATOMOXETINE HYDROCHLORIDE
  9. BERINERT [Suspect]
     Active Substance: HUMAN C1-ESTERASE INHIBITOR
     Indication: Product used for unknown indication
  10. BOTULINUM TOXIN TYPE A [Suspect]
     Active Substance: BOTULINUM TOXIN TYPE A
     Indication: Product used for unknown indication
  11. BUTRANS [Suspect]
     Active Substance: BUPRENORPHINE
     Indication: Product used for unknown indication
  12. CALCIUM ASCORBATE [Suspect]
     Active Substance: CALCIUM ASCORBATE
     Indication: Product used for unknown indication
  13. CALCIUM CARBONATE\CHOLECALCIFEROL [Suspect]
     Active Substance: CALCIUM CARBONATE\CHOLECALCIFEROL
     Indication: Product used for unknown indication
  14. CANDESARTAN [Suspect]
     Active Substance: CANDESARTAN
     Indication: Migraine
  15. CELECOXIB [Suspect]
     Active Substance: CELECOXIB
     Indication: Product used for unknown indication
  16. CETIRIZINE HYDROCHLORIDE [Suspect]
     Active Substance: CETIRIZINE HYDROCHLORIDE
     Indication: Rheumatoid arthritis
  17. CETIRIZINE HYDROCHLORIDE [Suspect]
     Active Substance: CETIRIZINE HYDROCHLORIDE
  18. CETIRIZINE HYDROCHLORIDE [Suspect]
     Active Substance: CETIRIZINE HYDROCHLORIDE
  19. CHLORHEXIDINE GLUCONATE [Suspect]
     Active Substance: CHLORHEXIDINE GLUCONATE
     Indication: Product used for unknown indication
  20. CHLORHEXIDINE GLUCONATE\ISOPROPYL ALCOHOL [Suspect]
     Active Substance: CHLORHEXIDINE GLUCONATE\ISOPROPYL ALCOHOL
     Indication: Product used for unknown indication
  21. CUPRIC OXIDE\FOLIC ACID\NIACIN\ZINC OXIDE [Suspect]
     Active Substance: CUPRIC OXIDE\FOLIC ACID\NIACIN\ZINC OXIDE
     Indication: Product used for unknown indication
  22. DESOXIMETASONE [Suspect]
     Active Substance: DESOXIMETASONE
     Indication: Product used for unknown indication
  23. DESOXIMETASONE [Suspect]
     Active Substance: DESOXIMETASONE
  24. DOMPERIDONE MALEATE [Suspect]
     Active Substance: DOMPERIDONE MALEATE
     Indication: Product used for unknown indication
  25. ENBREL [Suspect]
     Active Substance: ETANERCEPT
     Indication: Product used for unknown indication
  26. ERELZI [Suspect]
     Active Substance: ETANERCEPT-SZZS
     Indication: Rheumatoid arthritis
  27. ERELZI [Suspect]
     Active Substance: ETANERCEPT-SZZS
  28. FLUMETHASONE PIVALATE [Suspect]
     Active Substance: FLUMETHASONE PIVALATE
     Indication: Product used for unknown indication
  29. FLUMETHASONE PIVALATE [Suspect]
     Active Substance: FLUMETHASONE PIVALATE
  30. FOLIC ACID [Suspect]
     Active Substance: FOLIC ACID
     Indication: Product used for unknown indication
  31. FOSAMAX [Suspect]
     Active Substance: ALENDRONATE SODIUM
     Indication: Product used for unknown indication
  32. GOLD [Suspect]
     Active Substance: GOLD
     Indication: Product used for unknown indication
  33. HAIR KERATIN AMINO ACIDS GOLD COMPLEX [Suspect]
     Active Substance: HAIR KERATIN AMINO ACIDS GOLD COMPLEX
     Indication: Product used for unknown indication
  34. HYDROCORTISONE BUTYRATE [Suspect]
     Active Substance: HYDROCORTISONE BUTYRATE
     Indication: Product used for unknown indication
  35. HYDROXYCHLOROQUINE [Suspect]
     Active Substance: HYDROXYCHLOROQUINE
     Indication: Product used for unknown indication
  36. HYDROXYCHLOROQUINE SULFATE [Suspect]
     Active Substance: HYDROXYCHLOROQUINE SULFATE
     Indication: Rheumatoid arthritis
     Dosage: PATIENT ROA: SUBCUTANEOUS
  37. HYDROXYCHLOROQUINE SULFATE [Suspect]
     Active Substance: HYDROXYCHLOROQUINE SULFATE
  38. HYDROXYCHLOROQUINE SULFATE [Suspect]
     Active Substance: HYDROXYCHLOROQUINE SULFATE
  39. HYDROXYCHLOROQUINE SULFATE [Suspect]
     Active Substance: HYDROXYCHLOROQUINE SULFATE
     Dosage: PATIENT ROA: ORAL
  40. HYDROXYCHLOROQUINE SULFATE [Suspect]
     Active Substance: HYDROXYCHLOROQUINE SULFATE
     Dosage: PATIENT ROA: INTRA-ARTERIAL
  41. HYDROXYCHLOROQUINE SULFATE [Suspect]
     Active Substance: HYDROXYCHLOROQUINE SULFATE
     Dosage: PATIENT ROA: UNKNOWN
  42. DICLOFENAC POTASSIUM [Suspect]
     Active Substance: DICLOFENAC POTASSIUM
     Indication: Product used for unknown indication
  43. ALENDRONATE SODIUM [Suspect]
     Active Substance: ALENDRONATE SODIUM
     Indication: Rheumatoid arthritis
  44. ALENDRONATE SODIUM [Suspect]
     Active Substance: ALENDRONATE SODIUM
     Indication: Product used for unknown indication
  45. ALENDRONATE SODIUM [Suspect]
     Active Substance: ALENDRONATE SODIUM
  46. ALENDRONATE SODIUM [Suspect]
     Active Substance: ALENDRONATE SODIUM
  47. ALENDRONATE SODIUM [Suspect]
     Active Substance: ALENDRONATE SODIUM
  48. LEFLUNOMIDE [Suspect]
     Active Substance: LEFLUNOMIDE
     Indication: Product used for unknown indication
  49. LEFLUNOMIDE [Suspect]
     Active Substance: LEFLUNOMIDE
  50. AZATHIOPRINE [Suspect]
     Active Substance: AZATHIOPRINE
     Indication: Product used for unknown indication
  51. AZATHIOPRINE [Suspect]
     Active Substance: AZATHIOPRINE
  52. CALCIUM CITRATE [Suspect]
     Active Substance: CALCIUM CITRATE
     Indication: Product used for unknown indication
  53. CALCIUM GLUBIONATE [Suspect]
     Active Substance: CALCIUM GLUBIONATE
     Indication: Product used for unknown indication
  54. CETIRIZINE [Suspect]
     Active Substance: CETIRIZINE HYDROCHLORIDE
     Indication: Product used for unknown indication
  55. CIMZIA [Suspect]
     Active Substance: CERTOLIZUMAB PEGOL
     Indication: Product used for unknown indication
  56. CORTISONE ACETATE [Suspect]
     Active Substance: CORTISONE ACETATE
     Indication: Product used for unknown indication
  57. COSENTYX [Suspect]
     Active Substance: SECUKINUMAB
     Indication: Psoriatic arthropathy
  58. COSENTYX [Suspect]
     Active Substance: SECUKINUMAB
  59. COSENTYX [Suspect]
     Active Substance: SECUKINUMAB
     Dosage: PATIENT ROA: UNKNOWN
  60. COSENTYX [Suspect]
     Active Substance: SECUKINUMAB
  61. COSENTYX [Suspect]
     Active Substance: SECUKINUMAB
  62. COSENTYX [Suspect]
     Active Substance: SECUKINUMAB
  63. ERELZI [Suspect]
     Active Substance: ETANERCEPT-SZZS
     Indication: Rheumatoid arthritis
  64. ERELZI [Suspect]
     Active Substance: ETANERCEPT-SZZS
  65. ERELZI [Suspect]
     Active Substance: ETANERCEPT-SZZS
  66. ERELZI [Suspect]
     Active Substance: ETANERCEPT-SZZS
  67. ERELZI [Suspect]
     Active Substance: ETANERCEPT-SZZS
  68. ERENUMAB-AOOE [Suspect]
     Active Substance: ERENUMAB-AOOE
     Indication: Migraine
  69. ERGOCALCIFEROL [Suspect]
     Active Substance: ERGOCALCIFEROL
     Indication: Product used for unknown indication
  70. FLUMETHASONE [Suspect]
     Active Substance: FLUMETHASONE
     Indication: Product used for unknown indication
  71. GOLD SODIUM THIOMALATE [Suspect]
     Active Substance: GOLD SODIUM THIOMALATE
     Indication: Product used for unknown indication
  72. HYDROCORTISONE PROBUTATE [Suspect]
     Active Substance: HYDROCORTISONE PROBUTATE
     Indication: Product used for unknown indication
  73. HYRIMOZ [Suspect]
     Active Substance: ADALIMUMAB-ADAZ
     Indication: Rheumatoid arthritis
  74. HYRIMOZ [Suspect]
     Active Substance: ADALIMUMAB-ADAZ
     Indication: Rheumatoid arthritis
  75. HYRIMOZ [Suspect]
     Active Substance: ADALIMUMAB-ADAZ
  76. HYRIMOZ [Suspect]
     Active Substance: ADALIMUMAB-ADAZ
  77. HYRIMOZ [Suspect]
     Active Substance: ADALIMUMAB-ADAZ
  78. HYRIMOZ [Suspect]
     Active Substance: ADALIMUMAB-ADAZ
  79. HYRIMOZ [Suspect]
     Active Substance: ADALIMUMAB-ADAZ
  80. HYRIMOZ [Suspect]
     Active Substance: ADALIMUMAB-ADAZ
  81. INFLIXIMAB [Suspect]
     Active Substance: INFLIXIMAB
     Indication: Rheumatoid arthritis
  82. INFLIXIMAB [Suspect]
     Active Substance: INFLIXIMAB
  83. INFLIXIMAB [Suspect]
     Active Substance: INFLIXIMAB
  84. INFLIXIMAB [Suspect]
     Active Substance: INFLIXIMAB
  85. INFLIXIMAB [Suspect]
     Active Substance: INFLIXIMAB
  86. INFLIXIMAB [Suspect]
     Active Substance: INFLIXIMAB
  87. INFLIXIMAB [Suspect]
     Active Substance: INFLIXIMAB
  88. INFLIXIMAB [Suspect]
     Active Substance: INFLIXIMAB
  89. INFLIXIMAB [Suspect]
     Active Substance: INFLIXIMAB
  90. INFLIXIMAB [Suspect]
     Active Substance: INFLIXIMAB
  91. ISOPROPYL ALCOHOL [Suspect]
     Active Substance: ISOPROPYL ALCOHOL
     Indication: Product used for unknown indication
  92. KEVZARA [Suspect]
     Active Substance: SARILUMAB
     Indication: Product used for unknown indication
  93. LAMICTAL [Suspect]
     Active Substance: LAMOTRIGINE
     Indication: Product used for unknown indication
  94. MAGNESIUM CITRATE [Suspect]
     Active Substance: MAGNESIUM CITRATE
     Indication: Product used for unknown indication
  95. MAGNESIUM CITRATE [Suspect]
     Active Substance: MAGNESIUM CITRATE
  96. MAGNESIUM CITRATE [Suspect]
     Active Substance: MAGNESIUM CITRATE
  97. MAGNESIUM CITRATE [Suspect]
     Active Substance: MAGNESIUM CITRATE
  98. MAGNESIUM CITRATE [Suspect]
     Active Substance: MAGNESIUM CITRATE
  99. METFORMIN HYDROCHLORIDE [Suspect]
     Active Substance: METFORMIN HYDROCHLORIDE
     Indication: Product used for unknown indication
  100. METHOTREXATE [Suspect]
     Active Substance: METHOTREXATE
     Indication: Rheumatoid arthritis
     Dosage: DOSE FORM: SOLUTION INTRA- ARTERIAL PATIENT ROA: SUBCUTANEOUS
  101. MINOCYCLINE HYDROCHLORIDE [Suspect]
     Active Substance: MINOCYCLINE HYDROCHLORIDE
     Indication: Product used for unknown indication
  102. MYOCHRYSINE [Suspect]
     Active Substance: GOLD SODIUM THIOMALATE
     Indication: Rheumatoid arthritis
  103. MYOCHRYSINE [Suspect]
     Active Substance: GOLD SODIUM THIOMALATE
  104. MYOCHRYSINE [Suspect]
     Active Substance: GOLD SODIUM THIOMALATE
  105. MYOCHRYSINE [Suspect]
     Active Substance: GOLD SODIUM THIOMALATE
  106. MYOCHRYSINE [Suspect]
     Active Substance: GOLD SODIUM THIOMALATE
     Dosage: PATIENT ROA: ORAL
  107. MYOCHRYSINE [Suspect]
     Active Substance: GOLD SODIUM THIOMALATE
  108. MYOCHRYSINE [Suspect]
     Active Substance: GOLD SODIUM THIOMALATE
     Dosage: PATIENT ROA: ORAL
  109. MYOCHRYSINE [Suspect]
     Active Substance: GOLD SODIUM THIOMALATE
  110. MYOCHRYSINE [Suspect]
     Active Substance: GOLD SODIUM THIOMALATE
  111. MYOCHRYSINE [Suspect]
     Active Substance: GOLD SODIUM THIOMALATE
  112. MYOCHRYSINE [Suspect]
     Active Substance: GOLD SODIUM THIOMALATE
  113. MYOCHRYSINE [Suspect]
     Active Substance: GOLD SODIUM THIOMALATE
  114. MYOCHRYSINE [Suspect]
     Active Substance: GOLD SODIUM THIOMALATE
  115. MYOCHRYSINE [Suspect]
     Active Substance: GOLD SODIUM THIOMALATE
  116. MYOCHRYSINE [Suspect]
     Active Substance: GOLD SODIUM THIOMALATE
  117. MYOCHRYSINE [Suspect]
     Active Substance: GOLD SODIUM THIOMALATE
  118. MYOCHRYSINE [Suspect]
     Active Substance: GOLD SODIUM THIOMALATE
  119. NAPROXEN [Suspect]
     Active Substance: NAPROXEN
     Indication: Product used for unknown indication
  120. NAPROXEN [Suspect]
     Active Substance: NAPROXEN
  121. NAPROXEN [Suspect]
     Active Substance: NAPROXEN
  122. NAPROXEN [Suspect]
     Active Substance: NAPROXEN
  123. NAPROXEN [Suspect]
     Active Substance: NAPROXEN
     Dosage: DOSE FORM: TABLET (ENTERIC-COATED) PATIENT ROA: ORAL
  124. OXYCODONE [Suspect]
     Active Substance: OXYCODONE
     Indication: Product used for unknown indication
  125. OXYCODONE [Suspect]
     Active Substance: OXYCODONE
  126. PHTHALYLSULFATHIAZOLE [Suspect]
     Active Substance: PHTHALYLSULFATHIAZOLE
     Indication: Rheumatoid arthritis
  127. PSEUDOEPHEDRINE [Suspect]
     Active Substance: PSEUDOEPHEDRINE
     Indication: Product used for unknown indication
  128. PSEUDOEPHEDRINE HYDROCHLORIDE [Suspect]
     Active Substance: PSEUDOEPHEDRINE HYDROCHLORIDE
     Indication: Rheumatoid arthritis
  129. RAMIPRIL [Suspect]
     Active Substance: RAMIPRIL
     Indication: Off label use
  130. SULFASALAZINE [Suspect]
     Active Substance: SULFASALAZINE
     Indication: Rheumatoid arthritis
  131. DICLOFENAC SODIUM [Suspect]
     Active Substance: DICLOFENAC SODIUM
     Indication: Product used for unknown indication
  132. LEFLUNOMIDE [Suspect]
     Active Substance: LEFLUNOMIDE
     Indication: Rheumatoid arthritis
  133. LEFLUNOMIDE [Suspect]
     Active Substance: LEFLUNOMIDE
  134. LEFLUNOMIDE [Suspect]
     Active Substance: LEFLUNOMIDE
  135. LEFLUNOMIDE [Suspect]
     Active Substance: LEFLUNOMIDE
  136. LEFLUNOMIDE [Suspect]
     Active Substance: LEFLUNOMIDE
  137. LEFLUNOMIDE [Suspect]
     Active Substance: LEFLUNOMIDE
  138. SIMPONI [Suspect]
     Active Substance: GOLIMUMAB
     Indication: Rheumatoid arthritis
  139. SIRUKUMAB [Suspect]
     Active Substance: SIRUKUMAB
     Indication: Rheumatoid arthritis
  140. SIRUKUMAB [Suspect]
     Active Substance: SIRUKUMAB
     Indication: Prostatic specific antigen
  141. TRIAMCINOLONE ACETONIDE [Suspect]
     Active Substance: TRIAMCINOLONE ACETONIDE
     Indication: Product used for unknown indication
  142. TRIAMCINOLONE ACETONIDE [Suspect]
     Active Substance: TRIAMCINOLONE ACETONIDE
  143. TRIAMCINOLONE ACETONIDE [Suspect]
     Active Substance: TRIAMCINOLONE ACETONIDE
  144. TRIAMCINOLONE ACETONIDE [Suspect]
     Active Substance: TRIAMCINOLONE ACETONIDE
  145. VITAMIN C [Suspect]
     Active Substance: ASCORBIC ACID
     Indication: Product used for unknown indication
  146. METHOTREXATE [Suspect]
     Active Substance: METHOTREXATE
     Indication: Rheumatoid arthritis
  147. METHOTREXATE [Suspect]
     Active Substance: METHOTREXATE
  148. METHOTREXATE [Suspect]
     Active Substance: METHOTREXATE
  149. METHOTREXATE [Suspect]
     Active Substance: METHOTREXATE
  150. METHOTREXATE [Suspect]
     Active Substance: METHOTREXATE
  151. METHOTREXATE [Suspect]
     Active Substance: METHOTREXATE
  152. METHOTREXATE [Suspect]
     Active Substance: METHOTREXATE
  153. METHOTREXATE [Suspect]
     Active Substance: METHOTREXATE
     Dosage: DOSE FORM: TABLET AND PATIENT ROA: SUBCUTANEOUS
  154. METHOTREXATE [Suspect]
     Active Substance: METHOTREXATE
  155. METHYLPREDNISOLONE ACETATE [Suspect]
     Active Substance: METHYLPREDNISOLONE ACETATE
     Indication: Rheumatoid arthritis
  156. METHYLPREDNISOLONE ACETATE [Suspect]
     Active Substance: METHYLPREDNISOLONE ACETATE
  157. METHYLPREDNISOLONE ACETATE [Suspect]
     Active Substance: METHYLPREDNISOLONE ACETATE
     Dosage: PATIENT ROA: ORAL
  158. METHYLPREDNISOLONE SODIUM SUCCINATE [Suspect]
     Active Substance: METHYLPREDNISOLONE SODIUM SUCCINATE
     Indication: Product used for unknown indication
  159. METHYLPREDNISOLONE SODIUM SUCCINATE [Suspect]
     Active Substance: METHYLPREDNISOLONE SODIUM SUCCINATE
  160. MINOCYCLINE HYDROCHLORIDE [Suspect]
     Active Substance: MINOCYCLINE HYDROCHLORIDE
     Indication: Product used for unknown indication
  161. MYOCHRYSINE [Suspect]
     Active Substance: GOLD SODIUM THIOMALATE
     Indication: Rheumatoid arthritis
  162. MYRBETRIQ [Suspect]
     Active Substance: MIRABEGRON
     Indication: Rheumatoid arthritis
  163. NAPROXEN SODIUM [Suspect]
     Active Substance: NAPROXEN SODIUM
     Indication: Product used for unknown indication
  164. NUCALA [Suspect]
     Active Substance: MEPOLIZUMAB
     Indication: Product used for unknown indication
  165. NUCALA [Suspect]
     Active Substance: MEPOLIZUMAB
  166. NUCALA [Suspect]
     Active Substance: MEPOLIZUMAB
  167. NUCALA [Suspect]
     Active Substance: MEPOLIZUMAB
  168. NUCALA [Suspect]
     Active Substance: MEPOLIZUMAB
     Dosage: PATIENT ROA: ORAL
  169. NUCALA [Suspect]
     Active Substance: MEPOLIZUMAB
  170. NUCALA [Suspect]
     Active Substance: MEPOLIZUMAB
  171. NUCALA [Suspect]
     Active Substance: MEPOLIZUMAB
  172. NUCALA [Suspect]
     Active Substance: MEPOLIZUMAB
  173. NUCALA [Suspect]
     Active Substance: MEPOLIZUMAB
  174. NUCALA [Suspect]
     Active Substance: MEPOLIZUMAB
  175. NUCALA [Suspect]
     Active Substance: MEPOLIZUMAB
  176. NUCALA [Suspect]
     Active Substance: MEPOLIZUMAB
     Dosage: PATIENT ROA: ORAL
     Route: 048
  177. NUCALA [Suspect]
     Active Substance: MEPOLIZUMAB
  178. NUCALA [Suspect]
     Active Substance: MEPOLIZUMAB
  179. NUCALA [Suspect]
     Active Substance: MEPOLIZUMAB
  180. NUCALA [Suspect]
     Active Substance: MEPOLIZUMAB
  181. NUCALA [Suspect]
     Active Substance: MEPOLIZUMAB
  182. NUCALA [Suspect]
     Active Substance: MEPOLIZUMAB
  183. NUCALA [Suspect]
     Active Substance: MEPOLIZUMAB
  184. NUCALA [Suspect]
     Active Substance: MEPOLIZUMAB
  185. NUCALA [Suspect]
     Active Substance: MEPOLIZUMAB
  186. NUCALA [Suspect]
     Active Substance: MEPOLIZUMAB
  187. ORENCIA [Suspect]
     Active Substance: ABATACEPT
     Indication: Rheumatoid arthritis
  188. ORENCIA [Suspect]
     Active Substance: ABATACEPT
  189. ORENCIA [Suspect]
     Active Substance: ABATACEPT
  190. ORENCIA [Suspect]
     Active Substance: ABATACEPT
  191. OTEZLA [Suspect]
     Active Substance: APREMILAST
     Indication: Product used for unknown indication
  192. PHTHALYLSULFATHIAZOLE [Suspect]
     Active Substance: PHTHALYLSULFATHIAZOLE
     Indication: Rheumatoid arthritis
  193. PREDNISONE [Suspect]
     Active Substance: PREDNISONE
     Indication: Rheumatoid arthritis
  194. PSEUDOEPHEDRINE HYDROCHLORIDE [Suspect]
     Active Substance: PSEUDOEPHEDRINE HYDROCHLORIDE
     Indication: Rheumatoid arthritis
  195. PSEUDOEPHEDRINE HYDROCHLORIDE [Suspect]
     Active Substance: PSEUDOEPHEDRINE HYDROCHLORIDE
  196. PSEUDOEPHEDRINE HYDROCHLORIDE [Suspect]
     Active Substance: PSEUDOEPHEDRINE HYDROCHLORIDE
  197. PSEUDOEPHEDRINE HYDROCHLORIDE [Suspect]
     Active Substance: PSEUDOEPHEDRINE HYDROCHLORIDE
  198. PSEUDOEPHEDRINE HYDROCHLORIDE [Suspect]
     Active Substance: PSEUDOEPHEDRINE HYDROCHLORIDE
  199. PSEUDOEPHEDRINE HYDROCHLORIDE [Suspect]
     Active Substance: PSEUDOEPHEDRINE HYDROCHLORIDE
  200. PSEUDOEPHEDRINE HYDROCHLORIDE [Suspect]
     Active Substance: PSEUDOEPHEDRINE HYDROCHLORIDE
  201. PSEUDOEPHEDRINE HYDROCHLORIDE [Suspect]
     Active Substance: PSEUDOEPHEDRINE HYDROCHLORIDE
  202. PSEUDOEPHEDRINE HYDROCHLORIDE [Suspect]
     Active Substance: PSEUDOEPHEDRINE HYDROCHLORIDE
  203. PSEUDOEPHEDRINE HYDROCHLORIDE [Suspect]
     Active Substance: PSEUDOEPHEDRINE HYDROCHLORIDE
  204. PSEUDOEPHEDRINE HYDROCHLORIDE [Suspect]
     Active Substance: PSEUDOEPHEDRINE HYDROCHLORIDE
  205. RANITIDINE HYDROCHLORIDE [Suspect]
     Active Substance: RANITIDINE HYDROCHLORIDE
     Indication: Product used for unknown indication
  206. RANITIDINE HYDROCHLORIDE [Suspect]
     Active Substance: RANITIDINE HYDROCHLORIDE
  207. RANITIDINE HYDROCHLORIDE [Suspect]
     Active Substance: RANITIDINE HYDROCHLORIDE
  208. RANITIDINE HYDROCHLORIDE [Suspect]
     Active Substance: RANITIDINE HYDROCHLORIDE
  209. RANITIDINE HYDROCHLORIDE [Suspect]
     Active Substance: RANITIDINE HYDROCHLORIDE
  210. REMICADE [Suspect]
     Active Substance: INFLIXIMAB
     Indication: Product used for unknown indication
  211. RITUXIMAB [Suspect]
     Active Substance: RITUXIMAB
     Indication: Rheumatoid arthritis
     Dosage: PATIENT ROA: UNKNOWN
  212. RITUXIMAB [Suspect]
     Active Substance: RITUXIMAB
  213. RITUXIMAB [Suspect]
     Active Substance: RITUXIMAB
     Dosage: PATIENT ROA: INTRAVENOUS (NOT OTHERWISE SPECIFIED)
  214. RITUXIMAB [Suspect]
     Active Substance: RITUXIMAB
  215. RITUXIMAB [Suspect]
     Active Substance: RITUXIMAB
     Dosage: PATIENT ROA: INTRAVENOUS BOLUS
  216. RITUXIMAB [Suspect]
     Active Substance: RITUXIMAB
     Dosage: PATIENT ROA: UNKNOWN
  217. RITUXIMAB [Suspect]
     Active Substance: RITUXIMAB
  218. RITUXIMAB [Suspect]
     Active Substance: RITUXIMAB
  219. RITUXIMAB [Suspect]
     Active Substance: RITUXIMAB
  220. RITUXIMAB [Suspect]
     Active Substance: RITUXIMAB
  221. RITUXIMAB [Suspect]
     Active Substance: RITUXIMAB
  222. RITUXIMAB [Suspect]
     Active Substance: RITUXIMAB
     Dosage: PATIENT ROA: UNKNOWN
  223. RITUXIMAB [Suspect]
     Active Substance: RITUXIMAB
     Dosage: PATIENT ROA: UNKNOWN
  224. RITUXIMAB [Suspect]
     Active Substance: RITUXIMAB
     Dosage: PATIENT ROA: UNKNOWN
  225. RITUXIMAB [Suspect]
     Active Substance: RITUXIMAB
  226. RITUXIMAB [Suspect]
     Active Substance: RITUXIMAB
     Dosage: PATIENT ROA: INTRAVENOUS (NOT OTHERWISE SPECIFIED)
  227. RITUXIMAB [Suspect]
     Active Substance: RITUXIMAB
  228. RITUXIMAB [Suspect]
     Active Substance: RITUXIMAB
  229. RITUXIMAB [Suspect]
     Active Substance: RITUXIMAB
  230. RITUXIMAB [Suspect]
     Active Substance: RITUXIMAB
  231. RITUXIMAB [Suspect]
     Active Substance: RITUXIMAB
  232. RITUXIMAB [Suspect]
     Active Substance: RITUXIMAB
  233. RITUXIMAB [Suspect]
     Active Substance: RITUXIMAB
  234. RITUXIMAB [Suspect]
     Active Substance: RITUXIMAB
  235. RITUXIMAB [Suspect]
     Active Substance: RITUXIMAB
  236. RITUXIMAB [Suspect]
     Active Substance: RITUXIMAB
     Dosage: PATIENT ROA: INTRAVENOUS (NOT OTHERWISE SPECIFIED)
  237. RITUXIMAB [Suspect]
     Active Substance: RITUXIMAB
     Dosage: PATIENT ROA: INTRAVENOUS (NOT OTHERWISE SPECIFIED)
  238. RITUXIMAB [Suspect]
     Active Substance: RITUXIMAB
  239. RITUXIMAB [Suspect]
     Active Substance: RITUXIMAB
  240. RITUXIMAB [Suspect]
     Active Substance: RITUXIMAB
     Dosage: PATIENT ROA: INTRAVENOUS (NOT OTHERWISE SPECIFIED)
  241. RITUXIMAB [Suspect]
     Active Substance: RITUXIMAB
     Dosage: PATIENT ROA: INTRAVENOUS (NOT OTHERWISE SPECIFIED)
  242. SULFASALAZINE [Suspect]
     Active Substance: SULFASALAZINE
     Indication: Rheumatoid arthritis
  243. SULFASALAZINE [Suspect]
     Active Substance: SULFASALAZINE
  244. SULFASALAZINE [Suspect]
     Active Substance: SULFASALAZINE
  245. SULFASALAZINE [Suspect]
     Active Substance: SULFASALAZINE
     Dosage: PATIENT ROA: SUBCUTANEOUS
  246. SULFASALAZINE [Suspect]
     Active Substance: SULFASALAZINE
     Dosage: PATIENT ROA: SUBCUTANEOUS
  247. HYDROCORTISONE [Suspect]
     Active Substance: HYDROCORTISONE
     Indication: Product used for unknown indication
  248. TOPIRAMATE [Suspect]
     Active Substance: TOPIRAMATE
     Indication: Product used for unknown indication
  249. TOPIRAMATE [Suspect]
     Active Substance: TOPIRAMATE
     Indication: Product used for unknown indication
  250. GOLD SODIUM THIOMALATE [Suspect]
     Active Substance: GOLD SODIUM THIOMALATE
     Indication: Product used for unknown indication
  251. SULFAMETHOXAZOLE\TRIMETHOPRIM [Suspect]
     Active Substance: SULFAMETHOXAZOLE\TRIMETHOPRIM
     Indication: Product used for unknown indication
  252. SULFASALAZINE [Suspect]
     Active Substance: SULFASALAZINE
     Indication: Product used for unknown indication
  253. TOFACITINIB [Suspect]
     Active Substance: TOFACITINIB
     Indication: Product used for unknown indication
  254. TRAMADOL HYDROCHLORIDE [Suspect]
     Active Substance: TRAMADOL HYDROCHLORIDE
     Indication: Rheumatoid arthritis
  255. TRAMADOL HYDROCHLORIDE [Suspect]
     Active Substance: TRAMADOL HYDROCHLORIDE
  256. XELJANZ [Suspect]
     Active Substance: TOFACITINIB CITRATE
     Indication: Product used for unknown indication
  257. XELJANZ [Suspect]
     Active Substance: TOFACITINIB CITRATE
  258. XELJANZ [Suspect]
     Active Substance: TOFACITINIB CITRATE
  259. XELJANZ [Suspect]
     Active Substance: TOFACITINIB CITRATE
  260. XELJANZ [Suspect]
     Active Substance: TOFACITINIB CITRATE
  261. XELJANZ [Suspect]
     Active Substance: TOFACITINIB CITRATE
  262. XELJANZ [Suspect]
     Active Substance: TOFACITINIB CITRATE
  263. XELJANZ [Suspect]
     Active Substance: TOFACITINIB CITRATE
  264. XELJANZ [Suspect]
     Active Substance: TOFACITINIB CITRATE
  265. XELJANZ [Suspect]
     Active Substance: TOFACITINIB CITRATE
  266. XELJANZ [Suspect]
     Active Substance: TOFACITINIB CITRATE
  267. XELJANZ [Suspect]
     Active Substance: TOFACITINIB CITRATE
  268. XELJANZ [Suspect]
     Active Substance: TOFACITINIB CITRATE
  269. XELJANZ [Suspect]
     Active Substance: TOFACITINIB CITRATE
  270. XELJANZ [Suspect]
     Active Substance: TOFACITINIB CITRATE
  271. XELJANZ [Suspect]
     Active Substance: TOFACITINIB CITRATE
  272. XELJANZ [Suspect]
     Active Substance: TOFACITINIB CITRATE
  273. XELJANZ [Suspect]
     Active Substance: TOFACITINIB CITRATE
  274. XELJANZ [Suspect]
     Active Substance: TOFACITINIB CITRATE
  275. TRIAMCINOLONE ACETONIDE [Suspect]
     Active Substance: TRIAMCINOLONE ACETONIDE
     Indication: Product used for unknown indication
  276. LEFLUNOMIDE [Suspect]
     Active Substance: LEFLUNOMIDE
     Indication: Rheumatoid arthritis
  277. ARAVA [Suspect]
     Active Substance: LEFLUNOMIDE
     Indication: Product used for unknown indication
  278. RITUXIMAB [Suspect]
     Active Substance: RITUXIMAB
     Indication: Rheumatoid arthritis
     Dosage: PATIENT ROA: INTRAVENOUS (NOT OTHERWISE SPECIFIED)

REACTIONS (10)
  - Pneumonia [Fatal]
  - Systemic lupus erythematosus [Fatal]
  - Contraindicated product administered [Fatal]
  - Off label use [Fatal]
  - Adverse reaction [Fatal]
  - Onychomycosis [Fatal]
  - Type 2 diabetes mellitus [Fatal]
  - Rheumatoid arthritis [Fatal]
  - Obesity [Fatal]
  - Stomatitis [Fatal]
